FAERS Safety Report 25374163 (Version 1)
Quarter: 2025Q2

REPORT INFORMATION
  Report Type: Spontaneous
  Country: US (occurrence: None)
  Receive Date: 20250529
  Receipt Date: 20250529
  Transmission Date: 20250716
  Serious: Yes (Hospitalization)
  Sender: FDA-CTU
  Company Number: None

PATIENT
  Age: 73 Year
  Sex: Male
  Weight: 83.5 kg

DRUGS (1)
  1. RADIUM RA-223 DICHLORIDE [Suspect]
     Active Substance: RADIUM RA-223 DICHLORIDE
     Dates: end: 20221122

REACTIONS (11)
  - Asthenia [None]
  - Fatigue [None]
  - Decreased appetite [None]
  - Nausea [None]
  - Blood sodium decreased [None]
  - Hyponatraemia [None]
  - Fall [None]
  - Head injury [None]
  - Joint injury [None]
  - Joint injury [None]
  - Femur fracture [None]

NARRATIVE: CASE EVENT DATE: 20230313
